FAERS Safety Report 9345020 (Version 1)
Quarter: 2013Q2

REPORT INFORMATION
  Report Type: Spontaneous
  Country: IN (occurrence: IN)
  Receive Date: 20130612
  Receipt Date: 20130612
  Transmission Date: 20140414
  Serious: Yes (Hospitalization)
  Sender: FDA-Public Use
  Company Number: IN-PERRIGO-13IN005996

PATIENT
  Age: 2 Year
  Sex: Male

DRUGS (2)
  1. MIDAZOLAM HCL RX 2 MG/ML 7H8 [Suspect]
     Indication: SEDATION
     Dosage: 0.1 MG/KG, SINGLE
     Route: 048
  2. AZITHROMYCIN [Suspect]
     Indication: PYREXIA
     Dosage: 200 MG, QD
     Route: 048

REACTIONS (2)
  - Drug interaction [Recovered/Resolved]
  - Sedation [Recovered/Resolved]
